FAERS Safety Report 15250167 (Version 3)
Quarter: 2018Q4

REPORT INFORMATION
  Report Type: Spontaneous
  Country: DE (occurrence: DE)
  Receive Date: 20180807
  Receipt Date: 20181217
  Transmission Date: 20190204
  Serious: Yes (Hospitalization)
  Sender: FDA-Public Use
  Company Number: DE-PFIZER INC-2009241081

PATIENT
  Age: 82 Year
  Sex: Female
  Weight: 65 kg

DRUGS (8)
  1. MOLSIDOMINE [Suspect]
     Active Substance: MOLSIDOMINE
     Dosage: 5X8 MG, SINGLE
     Route: 048
     Dates: start: 20090713, end: 20090713
  2. SOLVEX [Suspect]
     Active Substance: BENZOIC ACID\CHLOROTHYMOL\SALICYLIC ACID\THYMOL OR BROMHEXINE HYDROCHLORIDE OR REBOXETINE MESYLATE
     Dosage: 20 MG, 1X/DAY (IN TOTAL)
     Route: 048
     Dates: start: 20090713, end: 20090713
  3. VASERETIC [Suspect]
     Active Substance: ENALAPRIL MALEATE\HYDROCHLOROTHIAZIDE
     Dosage: 5 DF, (50MG/125MG IN TOTAL)
     Route: 048
     Dates: start: 20090713, end: 20090713
  4. TEBONIN FORTE [Suspect]
     Active Substance: GINKGO
     Dosage: 15X40 MG, ONCE
     Route: 048
     Dates: start: 20090713, end: 20090713
  5. OLMETEC [Suspect]
     Active Substance: OLMESARTAN MEDOXOMIL
     Dosage: 10X10 MG, ONCE
     Route: 048
     Dates: start: 20090713, end: 20090713
  6. METOPROLOL TARTRATE. [Suspect]
     Active Substance: METOPROLOL TARTRATE
     Dosage: 10X50 MG, ONCE
     Route: 048
     Dates: start: 20090713, end: 20090713
  7. CORVO HCT [Suspect]
     Active Substance: ENALAPRIL MALEATE\HYDROCHLOROTHIAZIDE
     Dosage: 5 DF, 1X/DAY
     Route: 048
     Dates: start: 20090713, end: 20090713
  8. ISOSORBIDE MONONITRATE. [Suspect]
     Active Substance: ISOSORBIDE MONONITRATE
     Dosage: 5 DF, SINGLE
     Route: 048
     Dates: start: 20090713, end: 20090713

REACTIONS (4)
  - Intentional overdose [Recovered/Resolved]
  - Suicide attempt [Recovered/Resolved]
  - Bradycardia [Recovered/Resolved]
  - Atrioventricular block first degree [Recovered/Resolved]

NARRATIVE: CASE EVENT DATE: 20090713
